FAERS Safety Report 9498276 (Version 3)
Quarter: 2014Q1

REPORT INFORMATION
  Report Type: Spontaneous
  Country: US (occurrence: US)
  Receive Date: 20130904
  Receipt Date: 20140210
  Transmission Date: 20141002
  Serious: Yes (Other)
  Sender: FDA-Public Use
  Company Number: US-PFIZER INC-2013252059

PATIENT
  Age: 65 Year
  Sex: Female
  Weight: 57 kg

DRUGS (2)
  1. VERAPAMIL HCL [Suspect]
     Indication: MIGRAINE
     Dosage: UNK
  2. DEXAMETHASONE/TOBRAMYCIN SULFATE [Suspect]
     Indication: EYE DISORDER
     Dosage: 1 GTT, 3X/DAY
     Dates: start: 201308

REACTIONS (2)
  - Retinal detachment [Unknown]
  - Off label use [Unknown]
